FAERS Safety Report 7323622-7 (Version None)
Quarter: 2011Q1

REPORT INFORMATION
  Report Type: 
  Country: None (occurrence: None)
  Receive Date: 20110301
  Receipt Date: 20110223
  Transmission Date: 20110831
  Serious: Yes (Death)
  Sender: FDA-Public Use
  Company Number: NL-ROCHE-762107

PATIENT
  Age: 62 Year
  Sex: Male

DRUGS (6)
  1. MIRCERA [Suspect]
     Route: 058
  2. MIRCERA [Suspect]
     Route: 058
     Dates: start: 20100501
  3. MIRCERA [Suspect]
     Route: 058
     Dates: start: 20091201
  4. NEORECORMON [Suspect]
     Route: 058
  5. MIRCERA [Suspect]
     Route: 058
     Dates: start: 20090404
  6. NEORECORMON [Suspect]
     Route: 058

REACTIONS (2)
  - BONE MARROW FAILURE [None]
  - HAEMOGLOBIN DECREASED [None]
